FAERS Safety Report 16914690 (Version 3)
Quarter: 2020Q1

REPORT INFORMATION
  Report Type: Spontaneous
  Country: US (occurrence: US)
  Receive Date: 20191014
  Receipt Date: 20200107
  Transmission Date: 20200409
  Serious: Yes (Other)
  Sender: FDA-Public Use
  Company Number: US-PFIZER INC-2019437292

PATIENT
  Age: 71 Year
  Sex: Female
  Weight: 125.64 kg

DRUGS (2)
  1. LYRICA [Suspect]
     Active Substance: PREGABALIN
     Indication: BACK PAIN
     Dosage: 75 MG, 2X/DAY
     Dates: start: 201806
  2. LYRICA [Suspect]
     Active Substance: PREGABALIN
     Indication: SPINAL STENOSIS
     Dosage: 75 MG, 2X/DAY
     Route: 048
     Dates: start: 201907

REACTIONS (1)
  - Groin pain [Recovering/Resolving]

NARRATIVE: CASE EVENT DATE: 201805
